FAERS Safety Report 13335848 (Version 1)
Quarter: 2017Q1

REPORT INFORMATION
  Report Type: Spontaneous
  Country: US (occurrence: US)
  Receive Date: 20170314
  Receipt Date: 20170314
  Transmission Date: 20170428
  Serious: No
  Sender: FDA-Public Use
  Company Number: US-IMPAX LABORATORIES, INC-2016-IPXL-00442

PATIENT
  Sex: Female
  Weight: 56 kg

DRUGS (12)
  1. DICYCLOMINE [Concomitant]
     Active Substance: DICYCLOMINE HYDROCHLORIDE
     Indication: IRRITABLE BOWEL SYNDROME
     Dosage: UNK
     Route: 065
  2. BACLOFEN. [Concomitant]
     Active Substance: BACLOFEN
     Indication: ARTHRALGIA
  3. MAXALT [Concomitant]
     Active Substance: RIZATRIPTAN BENZOATE
     Indication: MIGRAINE
     Dosage: UNK
     Route: 065
  4. FLUTICASONE. [Concomitant]
     Active Substance: FLUTICASONE
     Indication: CHRONIC OBSTRUCTIVE PULMONARY DISEASE
     Dosage: UNK
     Route: 045
  5. EPIPEN [Concomitant]
     Active Substance: EPINEPHRINE
     Indication: EMERGENCY CARE
     Dosage: UNK
     Route: 065
  6. BACLOFEN. [Concomitant]
     Active Substance: BACLOFEN
     Indication: MYALGIA
     Dosage: (10 MG)
     Route: 065
  7. BACLOFEN. [Concomitant]
     Active Substance: BACLOFEN
     Indication: MUSCULOSKELETAL PAIN
  8. BUPROPION HYDROCHLORIDE SR [Suspect]
     Active Substance: BUPROPION HYDROCHLORIDE
     Indication: MAJOR DEPRESSION
     Dosage: 150 MG, 1 /DAY
     Route: 048
     Dates: start: 201402
  9. BUPROPION HYDROCHLORIDE SR [Suspect]
     Active Substance: BUPROPION HYDROCHLORIDE
     Dosage: 300 MG, 1 /DAY
     Route: 048
     Dates: start: 2014
  10. VERAPAMIL [Concomitant]
     Active Substance: VERAPAMIL HYDROCHLORIDE
     Indication: MIGRAINE
     Dosage: 120 MG
     Route: 065
  11. EQUATE [Concomitant]
     Active Substance: UNSPECIFIED INGREDIENT
     Indication: HYPERSENSITIVITY
     Dosage: UNK
     Route: 065
  12. ASPIRIN. [Concomitant]
     Active Substance: ASPIRIN
     Indication: PAIN
     Dosage: UNK
     Route: 065

REACTIONS (5)
  - Abdominal pain [Recovered/Resolved]
  - Headache [Recovered/Resolved]
  - Alopecia [Recovering/Resolving]
  - Nausea [Recovered/Resolved]
  - Vision blurred [Recovered/Resolved]
